FAERS Safety Report 21028485 (Version 1)
Quarter: 2022Q2

REPORT INFORMATION
  Report Type: Spontaneous
  Country: DE (occurrence: DE)
  Receive Date: 20220630
  Receipt Date: 20220630
  Transmission Date: 20220720
  Serious: Yes (Life-Threatening, Other)
  Sender: FDA-Public Use
  Company Number: None

PATIENT
  Age: 58 Year
  Sex: Male
  Weight: 99 kg

DRUGS (1)
  1. TRULICITY [Suspect]
     Active Substance: DULAGLUTIDE
     Indication: Product used for unknown indication
     Route: 065
     Dates: start: 202112, end: 202202

REACTIONS (7)
  - Pancreatic duct dilatation [Recovered/Resolved with Sequelae]
  - Pancreatitis chronic [Recovered/Resolved with Sequelae]
  - Lipase increased [Recovered/Resolved with Sequelae]
  - Diarrhoea [Recovered/Resolved with Sequelae]
  - Pancreatolithiasis [Recovered/Resolved with Sequelae]
  - Pancreatic failure [Recovered/Resolved with Sequelae]
  - Pancreatic atrophy [Recovered/Resolved with Sequelae]

NARRATIVE: CASE EVENT DATE: 20220101
